FAERS Safety Report 5989018-5 (Version None)
Quarter: 2008Q4

REPORT INFORMATION
  Report Type: 
  Country: None (occurrence: None)
  Receive Date: 20081210
  Receipt Date: 20081208
  Transmission Date: 20090506
  Serious: Yes (Life-Threatening)
  Sender: FDA-Public Use
  Company Number: B0538666A

PATIENT
  Age: 86 Year
  Sex: Female
  Weight: 40 kg

DRUGS (5)
  1. ARIXTRA [Suspect]
     Indication: THROMBOSIS PROPHYLAXIS
     Dosage: 2.5MG PER DAY
     Route: 058
     Dates: start: 20080917, end: 20080923
  2. LOXONIN [Concomitant]
     Indication: ANALGESIA
     Dosage: 180MG PER DAY
     Route: 048
     Dates: start: 20080917, end: 20080923
  3. DASEN [Concomitant]
     Indication: ANALGESIA
     Dosage: 30MG PER DAY
     Route: 048
     Dates: start: 20080917, end: 20080923
  4. MARZULENE [Concomitant]
     Indication: ANALGESIA
     Dosage: 1.5G PER DAY
     Route: 048
     Dates: start: 20080917, end: 20080923
  5. MEIACT [Concomitant]
     Indication: INFECTION PROPHYLAXIS
     Dosage: 300MG PER DAY
     Route: 048
     Dates: start: 20080920, end: 20080923

REACTIONS (17)
  - ALTERED STATE OF CONSCIOUSNESS [None]
  - BASOPHIL COUNT DECREASED [None]
  - BINOCULAR EYE MOVEMENT DISORDER [None]
  - BLOOD CHOLESTEROL INCREASED [None]
  - BLOOD GLUCOSE INCREASED [None]
  - CEREBRAL HAEMORRHAGE [None]
  - HAEMATOCRIT DECREASED [None]
  - HAEMOGLOBIN DECREASED [None]
  - HEMIPLEGIA [None]
  - HIGH DENSITY LIPOPROTEIN INCREASED [None]
  - LOW DENSITY LIPOPROTEIN INCREASED [None]
  - LYMPHOCYTE COUNT DECREASED [None]
  - NEUTROPHIL COUNT INCREASED [None]
  - PLATELET COUNT INCREASED [None]
  - RED BLOOD CELL COUNT DECREASED [None]
  - VOMITING [None]
  - WHITE BLOOD CELL COUNT INCREASED [None]
